FAERS Safety Report 7298143-0 (Version None)
Quarter: 2011Q1

REPORT INFORMATION
  Report Type: 
  Country: None (occurrence: None)
  Receive Date: 20110207
  Receipt Date: 20110120
  Transmission Date: 20110831
  Serious: Yes (Other)
  Sender: FDA-Public Use
  Company Number: TPH-00304

PATIENT
  Age: 34 Year
  Sex: Female

DRUGS (1)
  1. TRIQUILAR (ETHINYLESTRADIOL + LECONORGESTREL) COATED TABLET (LOT # BS0 [Suspect]
     Indication: CONTRACEPTION
     Dosage: 10 DAYS OF PILL FREE PERIOD
     Route: 048
     Dates: start: 20050101, end: 20101112

REACTIONS (4)
  - ANTEPARTUM HAEMORRHAGE [None]
  - DRUG EXPOSURE DURING PREGNANCY [None]
  - ABORTION SPONTANEOUS [None]
  - PREGNANCY ON ORAL CONTRACEPTIVE [None]
